FAERS Safety Report 6558248-6 (Version None)
Quarter: 2010Q1

REPORT INFORMATION
  Report Type: 
  Country: None (occurrence: None)
  Receive Date: 20100126
  Receipt Date: 20100119
  Transmission Date: 20100710
  Serious: Yes (Disabling)
  Sender: FDA-Public Use
  Company Number: TPA2010A00234

PATIENT
  Age: 50 Year
  Sex: Female
  Weight: 43.0917 kg

DRUGS (2)
  1. ROZEREM [Suspect]
     Indication: INSOMNIA
     Dosage: 8 MG, QHS, PER ORAL
     Route: 048
     Dates: start: 20050901, end: 20091101
  2. DIAZEPAM [Concomitant]

REACTIONS (5)
  - ACCIDENT AT WORK [None]
  - BACK INJURY [None]
  - ECONOMIC PROBLEM [None]
  - MUSCLE ATROPHY [None]
  - MYOPATHY [None]
